FAERS Safety Report 8017041-8 (Version None)
Quarter: 2012Q1

REPORT INFORMATION
  Report Type: 
  Country: None (occurrence: None)
  Receive Date: 20120102
  Receipt Date: 20111229
  Transmission Date: 20120608
  Serious: Yes (Death, Hospitalization, Other)
  Sender: FDA-Public Use
  Company Number: PHEH2009US16957

PATIENT
  Sex: Female

DRUGS (36)
  1. LORAZEPAM [Concomitant]
     Dosage: 1 MG, QHS
     Route: 048
  2. AVASTIN [Concomitant]
  3. MIRALAX [Concomitant]
     Dosage: 17 G, DAILY
     Route: 048
  4. CHLORHEXIDINE GLUCONATE [Concomitant]
     Route: 061
  5. PIPERACILLIN AND TAZOBACTAM [Concomitant]
  6. OXYCONTIN [Concomitant]
     Dosage: 80 MG, TID
     Route: 048
  7. DIFLUCAN [Concomitant]
     Dosage: 100 MG, QD
     Route: 048
  8. PEPCID [Concomitant]
     Dosage: 20 MG, DAILY
     Route: 048
  9. GABAPENTIN [Concomitant]
     Route: 048
  10. IBUPROFEN (ADVIL) [Concomitant]
  11. METHADONE HCL [Concomitant]
     Dosage: 40 MG, BID
     Route: 048
  12. ZEGERID [Concomitant]
  13. DECADRON [Concomitant]
  14. SENOKOT [Concomitant]
  15. ZOMETA [Suspect]
     Dosage: 4 MG, UNK
     Route: 042
  16. SENNA-S (DOCUSATE SODIUM/SENNA ALEXANDRINA) [Concomitant]
  17. DEXAMETHASONE [Concomitant]
     Route: 048
  18. DULCOLAX [Concomitant]
     Dosage: 10 MG, QHS
     Route: 048
  19. ENOXAPARIN [Concomitant]
     Dosage: 0.4 ML, DAILY
     Route: 058
  20. PENICILLIN VK [Concomitant]
     Dosage: 500 MG, QID
  21. TAXOL [Concomitant]
  22. BENZONATATE [Concomitant]
     Dosage: 20 MG, DAILY
  23. OXALIPLATIN [Concomitant]
  24. SOLU-MEDROL [Concomitant]
     Route: 042
  25. HYTRIN [Concomitant]
     Dosage: 1 MG, Q12H
     Route: 048
  26. POTASSIUM CHLORIDE [Concomitant]
     Dosage: 10 MEQ, DAILY
     Route: 048
  27. CELEBREX [Concomitant]
     Dosage: 200 MG, DAILY
     Route: 048
  28. ZOLPIDEM [Concomitant]
     Dosage: 10 MG, QHS
     Route: 048
  29. METHYLPREDNISOLONE [Concomitant]
  30. LEUCOVORIN CALCIUM [Concomitant]
  31. PULMICORT [Concomitant]
  32. DILAUDID [Concomitant]
     Route: 048
  33. PROTONIX [Concomitant]
     Dosage: 40 MG, QD
     Route: 042
  34. AMBIEN [Concomitant]
     Dosage: 10 MG, QHS
     Route: 048
  35. KYTRIL [Concomitant]
     Dosage: 1 MG, Q12H
  36. IPRATROPIUM BROMIDE [Concomitant]

REACTIONS (81)
  - MUSCULOSKELETAL CHEST PAIN [None]
  - BACK PAIN [None]
  - METASTASES TO PLEURA [None]
  - FATIGUE [None]
  - EXPOSED BONE IN JAW [None]
  - OSTEOMYELITIS [None]
  - ACUTE RESPIRATORY FAILURE [None]
  - THROMBOCYTOPENIA [None]
  - SINUS TACHYCARDIA [None]
  - CONSTIPATION [None]
  - HYPOKALAEMIA [None]
  - ABDOMINAL PAIN [None]
  - ABDOMINAL DISTENSION [None]
  - MUSCULOSKELETAL PAIN [None]
  - ILEUS [None]
  - WOUND DEHISCENCE [None]
  - COLON CANCER METASTATIC [None]
  - GENERAL PHYSICAL HEALTH DETERIORATION [None]
  - DYSPNOEA [None]
  - EMBOLISM VENOUS [None]
  - OBESITY [None]
  - HYPERTRIGLYCERIDAEMIA [None]
  - METASTASES TO ADRENALS [None]
  - PALMAR-PLANTAR ERYTHRODYSAESTHESIA SYNDROME [None]
  - HEPATIC STEATOSIS [None]
  - DYSKINESIA [None]
  - LUNG CANCER METASTATIC [None]
  - PLEURAL EFFUSION [None]
  - OEDEMA PERIPHERAL [None]
  - GASTROOESOPHAGEAL REFLUX DISEASE [None]
  - GASTRITIS [None]
  - METASTASES TO LIVER [None]
  - METASTASES TO LYMPH NODES [None]
  - PNEUMOTHORAX [None]
  - LEFT VENTRICULAR HYPERTROPHY [None]
  - WHEEZING [None]
  - MICTURITION FREQUENCY DECREASED [None]
  - ASTHENIA [None]
  - PARAPSORIASIS [None]
  - PARAESTHESIA [None]
  - OSTEONECROSIS OF JAW [None]
  - ANHEDONIA [None]
  - HYPERTHERMIA [None]
  - DRUG HYPERSENSITIVITY [None]
  - NON-SMALL CELL LUNG CANCER STAGE IV [None]
  - METASTASES TO BONE [None]
  - BONE NEOPLASM MALIGNANT [None]
  - ANAEMIA OF MALIGNANT DISEASE [None]
  - PYREXIA [None]
  - HYPONATRAEMIA [None]
  - COLON CANCER [None]
  - CEREBELLAR INFARCTION [None]
  - PULMONARY FIBROSIS [None]
  - ANXIETY [None]
  - PRODUCTIVE COUGH [None]
  - BRONCHITIS [None]
  - DECREASED APPETITE [None]
  - ECZEMA [None]
  - OSTEOSCLEROSIS [None]
  - HYPOAESTHESIA [None]
  - PERIPHERAL SENSORY NEUROPATHY [None]
  - BONE PAIN [None]
  - NEOPLASM MALIGNANT [None]
  - DYSPEPSIA [None]
  - FALL [None]
  - EPISTAXIS [None]
  - DEATH [None]
  - PAIN [None]
  - PNEUMONIA [None]
  - DEEP VEIN THROMBOSIS [None]
  - ATELECTASIS [None]
  - TOBACCO ABUSE [None]
  - MYOPATHY [None]
  - HEADACHE [None]
  - RESPIRATORY DISTRESS [None]
  - VISION BLURRED [None]
  - HIP FRACTURE [None]
  - NAUSEA [None]
  - BREAST PAIN [None]
  - CENTRAL NERVOUS SYSTEM LESION [None]
  - BREAST CANCER METASTATIC [None]
